FAERS Safety Report 23187213 (Version 1)
Quarter: 2023Q4

REPORT INFORMATION
  Report Type: Spontaneous
  Country: US (occurrence: US)
  Receive Date: 20231115
  Receipt Date: 20231115
  Transmission Date: 20240110
  Serious: Yes (Other)
  Sender: FDA-Public Use
  Company Number: US-UPSHER-SMITH LABORATORIES, LLC-2023USL00915

PATIENT
  Sex: Male
  Weight: 58.957 kg

DRUGS (1)
  1. ISOTRETINOIN [Suspect]
     Active Substance: ISOTRETINOIN
     Indication: Acne cystic
     Dosage: 60 MG, 1X/DAY
     Route: 048
     Dates: start: 20230926, end: 20231031

REACTIONS (2)
  - Depression [Unknown]
  - Sports injury [Unknown]

NARRATIVE: CASE EVENT DATE: 20230101
